FAERS Safety Report 11043099 (Version 1)
Quarter: 2015Q2

REPORT INFORMATION
  Report Type: Spontaneous
  Country: US (occurrence: None)
  Receive Date: 20150416
  Receipt Date: 20150416
  Transmission Date: 20150821
  Serious: No
  Sender: FDA-Public Use
  Company Number: None

PATIENT
  Age: 63 Year
  Sex: Male
  Weight: 63.05 kg

DRUGS (8)
  1. KETOTIFEN [Concomitant]
     Active Substance: KETOTIFEN
  2. MRGA MEN MULTI-VITAMINS [Concomitant]
  3. LORATADINE. [Concomitant]
     Active Substance: LORATADINE
  4. OPTIPROSTATE XLS [Concomitant]
  5. FLUNISOLIDE NASAL SOLUTION USP 0.025% [Suspect]
     Active Substance: FLUNISOLIDE
     Indication: SINUS DISORDER
     Dosage: 1-2 SPRAYS EACH NOSTRILS`
     Route: 055
     Dates: start: 20150330, end: 20150414
  6. GLUCOSAMINE + CHONDROITIN [Concomitant]
     Active Substance: CHONDROITIN SULFATE (BOVINE)\GLUCOSAMINE HYDROCHLORIDE
  7. FLUNISOLIDE NASAL SOLUTION USP 0.025% [Suspect]
     Active Substance: FLUNISOLIDE
     Indication: MULTIPLE ALLERGIES
     Dosage: 1-2 SPRAYS EACH NOSTRILS`
     Route: 055
     Dates: start: 20150330, end: 20150414
  8. OMEPRAZOLE. [Concomitant]
     Active Substance: OMEPRAZOLE

REACTIONS (1)
  - Product quality issue [None]

NARRATIVE: CASE EVENT DATE: 20150330
